FAERS Safety Report 5269988-3 (Version None)
Quarter: 2007Q1

REPORT INFORMATION
  Report Type: 
  Country: None (occurrence: None)
  Receive Date: 20070320
  Receipt Date: 20070312
  Transmission Date: 20070707
  Serious: Yes (Other)
  Sender: FDA-Public Use
  Company Number: PHNU2005DE03479

PATIENT
  Age: 30 Year
  Sex: Female

DRUGS (1)
  1. ELIDEL [Suspect]
     Indication: DERMATITIS ATOPIC
     Dosage: 1 DF, BID
     Route: 061
     Dates: start: 20050610, end: 20050901

REACTIONS (6)
  - CAESAREAN SECTION [None]
  - COMPLICATION OF DELIVERY [None]
  - DRUG EXPOSURE DURING PREGNANCY [None]
  - SINGLE UMBILICAL ARTERY [None]
  - ULTRASOUND DOPPLER ABNORMAL [None]
  - UMBILICAL CORD ABNORMALITY [None]
